FAERS Safety Report 8042879-0 (Version None)
Quarter: 2012Q1

REPORT INFORMATION
  Report Type: 
  Country: None (occurrence: None)
  Receive Date: 20120112
  Receipt Date: 20120104
  Transmission Date: 20120608
  Serious: Yes (Other)
  Sender: FDA-Public Use
  Company Number: CA-JNJFOC-20120103225

PATIENT
  Sex: Male
  Weight: 92 kg

DRUGS (7)
  1. STELARA [Suspect]
     Indication: PSORIASIS
     Route: 058
     Dates: start: 20060101, end: 20111028
  2. ALL OTHER NON-THERAPEUTIC PRODUCTS [Concomitant]
  3. METFORMIN HCL [Concomitant]
  4. PERINDOPRIL ERBUMINE [Concomitant]
  5. PROSCAR [Concomitant]
  6. ASPIRIN [Concomitant]
  7. SIMVASTATIN [Concomitant]

REACTIONS (1)
  - PROSTATE CANCER [None]
